FAERS Safety Report 7403269-4 (Version None)
Quarter: 2011Q2

REPORT INFORMATION
  Report Type: 
  Country: None (occurrence: None)
  Receive Date: 20110408
  Receipt Date: 20110331
  Transmission Date: 20111010
  Serious: Yes (Hospitalization)
  Sender: FDA-Public Use
  Company Number: GB-CEPHALON-2011001448

PATIENT
  Sex: Male
  Weight: 65 kg

DRUGS (5)
  1. RITUXIMAB [Suspect]
     Route: 042
     Dates: start: 20100817, end: 20110111
  2. BISOPROLOL [Concomitant]
     Dates: start: 19970101
  3. BENDAMUSTINE HCL [Suspect]
     Route: 042
     Dates: start: 20100817, end: 20110112
  4. ASPIRIN [Concomitant]
     Dates: start: 19970101
  5. BENDROFLUMETHIAZIDE [Concomitant]
     Dates: start: 19970101, end: 20110218

REACTIONS (1)
  - LOWER RESPIRATORY TRACT INFECTION [None]
